FAERS Safety Report 18222128 (Version 1)
Quarter: 2020Q3

REPORT INFORMATION
  Report Type: Spontaneous
  Country: US (occurrence: US)
  Receive Date: 20200901
  Receipt Date: 20200901
  Transmission Date: 20201103
  Serious: Yes (Death)
  Sender: FDA-Public Use
  Company Number: None

PATIENT
  Age: 69 Year
  Sex: Female

DRUGS (1)
  1. PERJETA [Suspect]
     Active Substance: PERTUZUMAB
     Dosage: DOSE 1: FOR CYCLE 1?DOSE 2: CYCLES 2?6 (EACH CYCLE IS 21 DAYS)
     Route: 042
     Dates: start: 20200626

REACTIONS (1)
  - Death [None]
